FAERS Safety Report 16637326 (Version 2)
Quarter: 2019Q3

REPORT INFORMATION
  Report Type: Spontaneous
  Country: CA (occurrence: CA)
  Receive Date: 20190726
  Receipt Date: 20190816
  Transmission Date: 20191004
  Serious: Yes (Life-Threatening, Hospitalization, Other)
  Sender: FDA-Public Use
  Company Number: CA-PFIZER INC-2014177686

PATIENT
  Age: 47 Year
  Sex: Female
  Weight: 65 kg

DRUGS (5)
  1. METHOTREXATE SODIUM. [Suspect]
     Active Substance: METHOTREXATE SODIUM
     Dosage: 3500 MG/M2, FREQ: CYCLICAL
     Route: 065
  2. METHOTREXATE SODIUM. [Suspect]
     Active Substance: METHOTREXATE SODIUM
     Indication: CENTRAL NERVOUS SYSTEM LYMPHOMA
     Dosage: 3500 MG/M2, CYCLE
     Route: 051
     Dates: start: 201209, end: 20121208
  3. LEUCOVORIN [FOLINIC ACID] [Concomitant]
     Active Substance: LEUCOVORIN
     Dosage: UNK
     Route: 065
  4. ARA-C [Suspect]
     Active Substance: CYTARABINE
     Indication: CENTRAL NERVOUS SYSTEM LYMPHOMA
     Dosage: 8 MG, SINGLE
     Route: 051
     Dates: start: 20121205, end: 20121205
  5. FOLINIC ACID [Concomitant]
     Active Substance: LEUCOVORIN
     Indication: PROPHYLAXIS
     Dosage: 25 MG/M2, EVERY 6 HOURS
     Dates: start: 20121205, end: 20121208

REACTIONS (10)
  - Hypoaesthesia [Unknown]
  - Pulmonary embolism [Recovered/Resolved]
  - Platelet count abnormal [Recovered/Resolved]
  - Paraplegia [Not Recovered/Not Resolved]
  - Neurotoxicity [Unknown]
  - Off label use [Unknown]
  - Pneumonia [Recovered/Resolved]
  - Drug resistance [Unknown]
  - Atelectasis [Recovered/Resolved]
  - Therapeutic product effect incomplete [Unknown]

NARRATIVE: CASE EVENT DATE: 201209
